FAERS Safety Report 7099464-7 (Version None)
Quarter: 2010Q4

REPORT INFORMATION
  Report Type: 
  Country: None (occurrence: None)
  Receive Date: 20101112
  Receipt Date: 20100702
  Transmission Date: 20110411
  Serious: Yes (Hospitalization)
  Sender: FDA-Public Use
  Company Number: FR-CELGENEUS-056-20785-10070152

PATIENT
  Sex: Female

DRUGS (8)
  1. THALIDOMIDE [Suspect]
     Indication: MULTIPLE MYELOMA
     Route: 048
     Dates: start: 20100430, end: 20100526
  2. AREDIA [Suspect]
     Indication: MULTIPLE MYELOMA
     Route: 065
     Dates: start: 20100429, end: 20100429
  3. ALKERAN [Suspect]
     Indication: MULTIPLE MYELOMA
     Route: 065
     Dates: start: 20100430, end: 20100503
  4. SOLUPRED [Suspect]
     Indication: MULTIPLE MYELOMA
     Route: 065
     Dates: start: 20100430, end: 20100503
  5. DIAMICRON [Concomitant]
     Route: 065
  6. ACTOS [Concomitant]
     Route: 065
  7. HYZAAR [Concomitant]
     Route: 065
  8. PIASCLEDINE [Concomitant]
     Route: 065

REACTIONS (1)
  - CYTOLYTIC HEPATITIS [None]
